FAERS Safety Report 22200700 (Version 1)
Quarter: 2023Q2

REPORT INFORMATION
  Report Type: Spontaneous
  Country: GB (occurrence: GB)
  Receive Date: 20230412
  Receipt Date: 20230412
  Transmission Date: 20230721
  Serious: Yes (Other)
  Sender: FDA-Public Use
  Company Number: GB-GILEAD-2023-0623120

PATIENT
  Sex: Male

DRUGS (13)
  1. BIKTARVY [Suspect]
     Active Substance: BICTEGRAVIR SODIUM\EMTRICITABINE\TENOFOVIR ALAFENAMIDE FUMARATE
     Indication: HIV infection
     Dosage: 50 MG /200 MG /25 MG TAB
     Route: 065
  2. ACYCLOVIR [Concomitant]
     Active Substance: ACYCLOVIR
     Dosage: 400MG ON
  3. ASPIRIN [Concomitant]
     Active Substance: ASPIRIN
     Dosage: 75MG DISPERSIBLE TABLETS-1-OM-28 TABLET
  4. ATORVASTATIN [Concomitant]
     Active Substance: ATORVASTATIN
     Dosage: 40MG TABLETS-1-OM-28 TABLET
  5. BISOPROLOL [Concomitant]
     Active Substance: BISOPROLOL
     Dosage: 1.25MG TABLETS-1-OM-28 TABLET
  6. CETIRIZINE [Concomitant]
     Active Substance: CETIRIZINE HYDROCHLORIDE
     Dosage: 10MG TABLET-1-OM-28 TABLET
  7. MONTELUKAST [Concomitant]
     Active Substance: MONTELUKAST SODIUM
     Dosage: 10MG TABLETS-1-OM-28 TABLET
  8. OMEPRAZOLE [Concomitant]
     Active Substance: OMEPRAZOLE
     Dosage: 20MG GASTRO-RESISTANT CAPSULES-1-OM-28 CAPSULE
  9. RAMIPRIL [Concomitant]
     Active Substance: RAMIPRIL
     Dosage: 1.25MG CAPSULES-1-BD-56 CAPSULE -MORNING + TEATIME
  10. SERETIDE [Concomitant]
     Active Substance: FLUTICASONE PROPIONATE\SALMETEROL XINAFOATE
     Dosage: ONE PUFF-BD- 1 X 60 DOSE
     Dates: end: 20230315
  11. VENTOLIN [Concomitant]
     Active Substance: ALBUTEROL SULFATE
     Dosage: 200MICROGRAMS/DOSE 1 PUFF 4-6 HOURLY -PRN-1 X 60 DOSE
     Dates: end: 20230315
  12. FLUTICASONE PROPIONATE\SALMETEROL XINAFOATE [Concomitant]
     Active Substance: FLUTICASONE PROPIONATE\SALMETEROL XINAFOATE
     Dosage: 25MICROGRAMS/DOSE / 125MICROGRAMS/DOSE INHALER -TWO PUFFS TO BE INHALED-BD1 X 120 DOSE
     Dates: end: 20230313
  13. VENTOLIN [Concomitant]
     Active Substance: ALBUTEROL SULFATE
     Dosage: 100MICROGRAMS/DOSE EVOHALER-TWO PUFFS-PRN-1 X 200 DOSE

REACTIONS (4)
  - Colectomy [Unknown]
  - Ileostomy [Unknown]
  - Colostomy [Unknown]
  - Colostomy closure [Unknown]
